FAERS Safety Report 4596092-X (Version None)
Quarter: 2005Q1

REPORT INFORMATION
  Report Type: 
  Country: None (occurrence: None)
  Receive Date: 20050225
  Receipt Date: 20050217
  Transmission Date: 20050727
  Serious: Yes (Other)
  Sender: FDA-Public Use
  Company Number: 200510136GDS

PATIENT
  Age: 58 Year
  Sex: Male

DRUGS (7)
  1. NIMOTOP [Suspect]
     Indication: SUBARACHNOID HAEMORRHAGE
     Dosage: 10 ML, Q1HR, INTRAVENOUS
     Route: 042
     Dates: start: 20040914, end: 20040923
  2. PERFUSALGAN [Concomitant]
  3. ACTRAPID [Concomitant]
  4. VALIUM [Concomitant]
  5. ZANTAC [Concomitant]
  6. CONTRAMAL [Concomitant]
  7. PLASMA-LYTE 56 AND DEXTROSE 5% IN PLASTIC CONTAINER [Concomitant]

REACTIONS (2)
  - CATHETER RELATED COMPLICATION [None]
  - PHARMACEUTICAL PRODUCT COMPLAINT [None]
